FAERS Safety Report 6409391-3 (Version None)
Quarter: 2009Q4

REPORT INFORMATION
  Report Type: 
  Country: None (occurrence: None)
  Receive Date: 20091019
  Receipt Date: 20091019
  Transmission Date: 20100525
  Serious: Yes (Hospitalization)
  Sender: FDA-Public Use
  Company Number: None

PATIENT
  Sex: Female
  Weight: 65.2 kg

DRUGS (6)
  1. DAUNORUBICIN HCL [Suspect]
     Dosage: 172 MG
  2. METHOTREXATE [Suspect]
     Dosage: 15 MG
  3. PEG-L ASPARAGINASE (K-H) [Suspect]
     Dosage: 4250 IU
  4. PREDNISONE [Suspect]
     Dosage: 2800 MG
  5. VINCRISTINE SULFATE [Suspect]
     Dosage: 8 MG
  6. CYTARABINE [Suspect]
     Dosage: 70 MG

REACTIONS (5)
  - BRONCHOPULMONARY ASPERGILLOSIS [None]
  - HYPOTENSION [None]
  - PANCREATITIS [None]
  - PULMONARY HAEMORRHAGE [None]
  - SEPSIS [None]
